FAERS Safety Report 9408720 (Version 1)
Quarter: 2013Q3

REPORT INFORMATION
  Report Type: Other
  Country: US (occurrence: US)
  Receive Date: 20130718
  Receipt Date: 20130718
  Transmission Date: 20140515
  Serious: Yes (Other)
  Sender: FDA-Public Use
  Company Number: US-RB-056205-13

PATIENT
  Age: 45 Year
  Sex: Male

DRUGS (2)
  1. BUPRENORPHINE/NALOXONE UNSPECIFIED [Suspect]
     Indication: PHANTOM PAIN
     Dosage: DOSING DETAILS UNKNOWN
     Route: 060
  2. BUPRENORPHINE/NALOXONE UNSPECIFIED [Suspect]
     Dosage: DOSE REDUCED TO 6 MG
     Route: 060

REACTIONS (4)
  - Off label use [Unknown]
  - Therapeutic response unexpected [Unknown]
  - Limb injury [Unknown]
  - Purulent discharge [Unknown]
